FAERS Safety Report 7818922-8 (Version None)
Quarter: 2011Q4

REPORT INFORMATION
  Report Type: 
  Country: None (occurrence: None)
  Receive Date: 20111017
  Receipt Date: 20111017
  Transmission Date: 20120403
  Serious: Yes (Hospitalization)
  Sender: FDA-Public Use
  Company Number: None

PATIENT
  Sex: Female
  Weight: 62.73 kg

DRUGS (4)
  1. CARBOPLATIN [Suspect]
     Dosage: 354 MG
  2. TAXOL [Suspect]
     Dosage: 289 MG
  3. ATIVAN [Concomitant]
  4. XANAX [Concomitant]

REACTIONS (6)
  - NEUTROPENIA [None]
  - ELECTROLYTE IMBALANCE [None]
  - ANAEMIA [None]
  - URINARY TRACT INFECTION [None]
  - MENTAL STATUS CHANGES [None]
  - ATRIAL FIBRILLATION [None]
